FAERS Safety Report 24223926 (Version 1)
Quarter: 2024Q3

REPORT INFORMATION
  Report Type: Spontaneous
  Country: US (occurrence: None)
  Receive Date: 20240817
  Receipt Date: 20240817
  Transmission Date: 20241017
  Serious: Yes (Life-Threatening)
  Sender: Public
  Company Number: None

PATIENT
  Age: 56 Year
  Sex: Female
  Weight: 92.25 kg

DRUGS (8)
  1. ATOMOXETINE [Suspect]
     Active Substance: ATOMOXETINE HYDROCHLORIDE
     Indication: Attention deficit hyperactivity disorder
     Dosage: 1 CAPSULE ORAL?
     Route: 048
     Dates: start: 20230711, end: 20231028
  2. Vyvanse 20 mg [Concomitant]
  3. BUPROPION XL 300 mg [Concomitant]
  4. Ubrelvy 100 mg [Concomitant]
  5. CETIRIZINE HCL [Concomitant]
  6. Sudafed 30 mg [Concomitant]
  7. Tylenol 500 mg [Concomitant]
  8. PRILOSEC [Concomitant]
     Active Substance: OMEPRAZOLE MAGNESIUM

REACTIONS (5)
  - Respiratory tract congestion [None]
  - Bronchitis [None]
  - Sinusitis [None]
  - Asthma [None]
  - Sinonasal obstruction [None]

NARRATIVE: CASE EVENT DATE: 20230801
